FAERS Safety Report 6021914-5 (Version None)
Quarter: 2008Q4

REPORT INFORMATION
  Report Type: 
  Country: None (occurrence: None)
  Receive Date: 20081229
  Receipt Date: 20081219
  Transmission Date: 20090506
  Serious: Yes (Hospitalization)
  Sender: FDA-Public Use
  Company Number: CH-PFIZER INC-2008156694

PATIENT

DRUGS (5)
  1. SILDENAFIL CITRATE [Suspect]
     Indication: PULMONARY HYPERTENSION
     Route: 048
     Dates: start: 20070301, end: 20081101
  2. XENALON [Concomitant]
     Route: 048
  3. BECOTAL [Concomitant]
     Route: 048
  4. OMEPRAZOLE [Concomitant]
     Route: 048
  5. METHADONE HYDROCHLORIDE [Concomitant]
     Route: 048

REACTIONS (6)
  - ALCOHOL USE [None]
  - HAEMOGLOBIN DECREASED [None]
  - HEPATIC FAILURE [None]
  - OESOPHAGEAL VARICES HAEMORRHAGE [None]
  - PERITONITIS BACTERIAL [None]
  - VARICES OESOPHAGEAL [None]
